FAERS Safety Report 17955510 (Version 1)
Quarter: 2020Q2

REPORT INFORMATION
  Report Type: Other
  Country: GB (occurrence: GB)
  Receive Date: 20200629
  Receipt Date: 20200629
  Transmission Date: 20200714
  Serious: No
  Sender: FDA-Public Use
  Company Number: GB-LUPIN PHARMACEUTICALS INC.-2020-02229

PATIENT
  Age: 77 Year
  Sex: Female
  Weight: 71 kg

DRUGS (9)
  1. SIMVASTATIN TABLETS [Suspect]
     Active Substance: SIMVASTATIN
     Indication: PRODUCT USED FOR UNKNOWN INDICATION
     Dosage: 40 MILLIGRAM, QD (AT NIGHT)
     Route: 065
     Dates: start: 20160805
  2. ESTRADERM [Concomitant]
     Active Substance: ESTRADIOL
     Indication: PRODUCT USED FOR UNKNOWN INDICATION
     Dosage: UNK UNK, AS DIRECTED
     Route: 065
     Dates: start: 19930421, end: 20200406
  3. CITALOPRAM [Concomitant]
     Active Substance: CITALOPRAM HYDROBROMIDE
     Indication: ILL-DEFINED DISORDER
     Dosage: 01 DOSAGE FORM, QD (ONE TO BE TAKEN EACH DAY)
     Route: 065
     Dates: start: 20160805
  4. ACETYLSALICYLIC ACID [Concomitant]
     Active Substance: ASPIRIN
     Indication: ILL-DEFINED DISORDER
     Dosage: 01 DOSAGE FORM, QD
     Route: 065
     Dates: start: 20160805, end: 20200406
  5. MELATONIN [Concomitant]
     Active Substance: MELATONIN
     Indication: ILL-DEFINED DISORDER
     Dosage: 01 DOSAGE FORM, QD (AT NIGHT)
     Route: 065
     Dates: start: 20171215
  6. CO-BENELDOPA [Concomitant]
     Active Substance: BENSERAZIDE HYDROCHLORIDE\LEVODOPA
     Indication: ILL-DEFINED DISORDER
     Dosage: 02 DOSAGE FORM, TID (2 TABS AT 10AM, 2PM AND 6PM)
     Route: 065
     Dates: start: 20171215
  7. PREGABALIN. [Concomitant]
     Active Substance: PREGABALIN
     Indication: ILL-DEFINED DISORDER
     Dosage: 01 DOSAGE FORM, BID
     Route: 065
     Dates: start: 20180219
  8. OMEPRAZOLE. [Concomitant]
     Active Substance: OMEPRAZOLE
     Indication: ILL-DEFINED DISORDER
     Dosage: UNK UNK, QD (TAKE 1-2 TABLETS DAILY)
     Route: 065
     Dates: start: 20161102
  9. LOSARTAN. [Concomitant]
     Active Substance: LOSARTAN
     Indication: ILL-DEFINED DISORDER
     Dosage: 01 DOSAGE FORM, QD (ONE TO BE TAKEN EACH DAY)
     Route: 065
     Dates: start: 20160805

REACTIONS (5)
  - Headache [Unknown]
  - Feeling abnormal [Unknown]
  - Photopsia [Unknown]
  - Nausea [Recovered/Resolved]
  - Drug hypersensitivity [Unknown]
